FAERS Safety Report 5803778-5 (Version None)
Quarter: 2008Q3

REPORT INFORMATION
  Report Type: 
  Country: None (occurrence: None)
  Receive Date: 20080708
  Receipt Date: 20080320
  Transmission Date: 20090109
  Serious: No
  Sender: FDA-Public Use
  Company Number: US-AMGEN-KDL270605

PATIENT
  Sex: Female

DRUGS (2)
  1. KINERET [Suspect]
     Indication: JUVENILE ARTHRITIS
  2. UNSPECIFIED ANABOLIC STEROID [Concomitant]

REACTIONS (1)
  - THERAPEUTIC RESPONSE DECREASED [None]
